FAERS Safety Report 10757795 (Version 4)
Quarter: 2015Q1

REPORT INFORMATION
  Report Type: Spontaneous
  Country: US (occurrence: US)
  Receive Date: 20150203
  Receipt Date: 20150313
  Transmission Date: 20150721
  Serious: Yes (Hospitalization)
  Sender: FDA-Public Use
  Company Number: US-UNITED THERAPEUTICS-UNT-2015-000291

PATIENT
  Age: 58 Year
  Sex: Female
  Weight: 61.22 kg

DRUGS (8)
  1. REMODULIN [Suspect]
     Active Substance: TREPROSTINIL
     Indication: PULMONARY HYPERTENSION
     Dosage: 0.075 ?G/KG, CONTINUING
     Route: 041
     Dates: start: 20120427
  2. ASPIRIN                            /00002701/ [Concomitant]
     Active Substance: ASPIRIN
     Indication: PRODUCT USED FOR UNKNOWN INDICATION
  3. REMODULIN [Suspect]
     Active Substance: TREPROSTINIL
     Indication: COR PULMONALE CHRONIC
     Dosage: 0.075 ?G/KG, CONTINUING
     Route: 041
     Dates: start: 20120427
  4. REMODULIN [Suspect]
     Active Substance: TREPROSTINIL
     Dosage: 0.101 ?G/KG, CONTINUING
     Route: 041
     Dates: start: 20120427
  5. REMODULIN [Suspect]
     Active Substance: TREPROSTINIL
     Dosage: 0.111 ?G/KG, CONTINUING
     Route: 041
     Dates: start: 20120816
  6. REVATIO [Concomitant]
     Active Substance: SILDENAFIL CITRATE
     Indication: PRODUCT USED FOR UNKNOWN INDICATION
  7. REMODULIN [Suspect]
     Active Substance: TREPROSTINIL
     Dosage: 0.103 ?G/KG, CONTINUING
     Route: 041
  8. LETAIRIS [Concomitant]
     Active Substance: AMBRISENTAN
     Indication: PRODUCT USED FOR UNKNOWN INDICATION

REACTIONS (3)
  - Condition aggravated [Unknown]
  - Blood pressure decreased [Unknown]
  - Fluid overload [Unknown]

NARRATIVE: CASE EVENT DATE: 201501
